FAERS Safety Report 6280269-1 (Version None)
Quarter: 2009Q3

REPORT INFORMATION
  Report Type: 
  Country: None (occurrence: None)
  Receive Date: 20090723
  Receipt Date: 20070716
  Transmission Date: 20100115
  Serious: Yes (Other)
  Sender: FDA-Public Use
  Company Number: US-ASTRAZENECA-2006UW23982

PATIENT
  Age: 15146 Day
  Sex: Female
  Weight: 98 kg

DRUGS (42)
  1. SEROQUEL [Suspect]
     Indication: DEPRESSION
     Route: 048
     Dates: start: 20030904
  2. SEROQUEL [Suspect]
     Indication: MOOD SWINGS
     Route: 048
     Dates: start: 20030904
  3. SEROQUEL [Suspect]
     Route: 048
  4. SEROQUEL [Suspect]
     Route: 048
  5. ABILIFY [Concomitant]
  6. GEODON [Concomitant]
  7. HALDOL [Concomitant]
  8. RISPERDAL [Concomitant]
  9. STELAZINE [Concomitant]
     Dates: start: 20060817
  10. THORAZINE [Concomitant]
  11. TRILAFON [Concomitant]
  12. ZYPREXA [Concomitant]
     Dates: start: 20001031
  13. MELLARIL [Concomitant]
  14. BUSPAR [Concomitant]
  15. XANAX [Concomitant]
  16. PROZAC [Concomitant]
     Dates: start: 20021007
  17. LITHIUM CARBONATE [Concomitant]
  18. GLUCOTROL XL [Concomitant]
     Indication: TYPE 2 DIABETES MELLITUS
     Route: 048
     Dates: start: 20001031
  19. CARDIZEM CD [Concomitant]
     Indication: HYPERTENSION
     Dosage: 120 MG EVERY DAY, 240 DAILY
     Dates: start: 20001031
  20. LASIX [Concomitant]
     Indication: OEDEMA
     Dosage: 40 MG EVERYDAY, 40 MG TWO TIMES A DAY
     Dates: start: 19991130
  21. ALBUTEROL SULFATE [Concomitant]
     Dates: start: 20021007
  22. NEURONTIN [Concomitant]
     Indication: DIABETIC NEUROPATHY
     Dosage: 40 MG THREE TIMES  A DAY, 400 MG EVERY DAY, 400 MG THREE TIMES A DAY
     Route: 048
     Dates: start: 20001031
  23. MEVACOR [Concomitant]
     Indication: HYPERCHOLESTEROLAEMIA
     Dosage: 20 MG EVERY DAY, 40 MG AT NIGHT
     Dates: start: 20001031
  24. MEVACOR [Concomitant]
     Indication: HYPERLIPIDAEMIA
     Dosage: 20 MG EVERY DAY, 40 MG AT NIGHT
     Dates: start: 20001031
  25. ATIVAN [Concomitant]
     Dates: start: 20021007
  26. FERROUS GLUCONATE [Concomitant]
     Dates: start: 20021007
  27. LYRICA [Concomitant]
     Indication: NEURALGIA
     Dates: start: 20060222
  28. PREDNISONE TAB [Concomitant]
     Dates: start: 20011203
  29. NPH [Concomitant]
     Indication: TYPE 2 DIABETES MELLITUS
     Dosage: 30 UNITS IN MORNING, 40 UNITS IN MORNING
     Dates: start: 20040625
  30. VYTORIN [Concomitant]
     Indication: MIXED HYPERLIPIDAEMIA
     Dosage: 10 - 20 MG AT BEDTIME
     Dates: start: 20051111
  31. TRICOR [Concomitant]
     Indication: HYPERLIPIDAEMIA
     Dosage: 145 DAILY
     Dates: start: 20040625
  32. TRICOR [Concomitant]
     Indication: MIXED HYPERLIPIDAEMIA
     Dosage: 145 DAILY
     Dates: start: 20040625
  33. OMEGA 3 FATTY ACID [Concomitant]
     Indication: HAEMORRHAGE
     Dosage: DAILY
     Dates: start: 20051111
  34. ACCOLATE [Concomitant]
     Dates: start: 20001031
  35. SINGULAIR [Concomitant]
     Dates: start: 20011203
  36. CELEXA [Concomitant]
     Dates: start: 20001031
  37. EFFEXOR [Concomitant]
     Dates: start: 20011203
  38. MEDROL [Concomitant]
     Dosage: TAPPERED DOSE
     Dates: start: 20011203
  39. PRAVACHOL [Concomitant]
     Indication: HYPERLIPIDAEMIA
     Dates: start: 20040625
  40. PREMARIN [Concomitant]
     Dates: start: 20020621
  41. COMPAZINE [Concomitant]
     Dates: start: 20040510
  42. COMBIVENT [Concomitant]
     Dates: start: 20040510

REACTIONS (10)
  - BLOOD TRIGLYCERIDES INCREASED [None]
  - DIABETES MELLITUS [None]
  - DIABETIC COMA [None]
  - DIABETIC FOOT [None]
  - NEUROPATHY PERIPHERAL [None]
  - PARAESTHESIA [None]
  - POLYNEUROPATHY [None]
  - POLYNEUROPATHY IDIOPATHIC PROGRESSIVE [None]
  - PREMATURE MENOPAUSE [None]
  - PSEUDODEMENTIA [None]
